FAERS Safety Report 5635510-2 (Version None)
Quarter: 2008Q1

REPORT INFORMATION
  Report Type: 
  Country: None (occurrence: None)
  Receive Date: 20080222
  Receipt Date: 20080214
  Transmission Date: 20080703
  Serious: Yes (Life-Threatening)
  Sender: FDA-Public Use
  Company Number: GB-PFIZER INC-2008014678

PATIENT
  Age: 63 Year
  Sex: Female
  Weight: 90 kg

DRUGS (18)
  1. CHANTIX [Suspect]
     Indication: SMOKING CESSATION THERAPY
     Route: 048
     Dates: start: 20080101, end: 20080104
  2. ASPIRIN [Concomitant]
  3. BISOPROLOL FUMARATE [Concomitant]
  4. CANDESARTAN [Concomitant]
  5. CITALOPRAM HYDROBROMIDE [Concomitant]
  6. CO-CODAMOL [Concomitant]
  7. DOXAZOSIN MESYLATE [Concomitant]
  8. FERROUS FUMARATE [Concomitant]
  9. FOLIC ACID [Concomitant]
  10. FUROSEMIDE [Concomitant]
  11. FYBOGEL [Concomitant]
  12. NITROGLYCERIN [Concomitant]
  13. HYDROXOCOBALAMIN [Concomitant]
  14. METFORMIN HCL [Concomitant]
  15. MIXTARD HUMAN 70/30 [Concomitant]
  16. OMEPRAZOLE [Concomitant]
  17. SIMVASTATIN [Concomitant]
  18. TILDIEM [Concomitant]

REACTIONS (3)
  - ACUTE MYOCARDIAL INFARCTION [None]
  - CHEST PAIN [None]
  - DYSPNOEA [None]
